FAERS Safety Report 5849468-4 (Version None)
Quarter: 2008Q3

REPORT INFORMATION
  Report Type: 
  Country: None (occurrence: None)
  Receive Date: 20080819
  Receipt Date: 20080808
  Transmission Date: 20090109
  Serious: Yes (Hospitalization)
  Sender: FDA-Public Use
  Company Number: US-JNJFOC-20080802228

PATIENT
  Sex: Female
  Weight: 74.84 kg

DRUGS (23)
  1. DURAGESIC-100 [Suspect]
     Indication: PAIN
     Route: 062
  2. VICODIN [Concomitant]
     Indication: PAIN
     Dosage: 5 / 500 MG
     Route: 048
  3. NORFLEX [Concomitant]
     Indication: MUSCLE RELAXANT THERAPY
     Route: 048
  4. DEMADEX [Concomitant]
     Indication: DIURETIC THERAPY
     Route: 048
  5. ZAROXOLYN [Concomitant]
     Indication: DIURETIC THERAPY
     Route: 048
  6. PANGESTYME [Concomitant]
     Dosage: ^4500^
     Route: 048
  7. PHENERGAN HCL [Concomitant]
     Route: 048
  8. KLOR-CON [Concomitant]
     Indication: BLOOD POTASSIUM
     Route: 048
  9. ESTRADIOL INJ [Concomitant]
     Indication: HORMONE REPLACEMENT THERAPY
     Route: 048
  10. DAILY-VITE [Concomitant]
     Indication: VITAMIN SUPPLEMENTATION
     Route: 048
  11. XANAX [Concomitant]
     Indication: NERVOUSNESS
     Route: 048
  12. NORVASC [Concomitant]
     Indication: HYPERTENSION
     Route: 048
  13. FLONASE [Concomitant]
     Indication: MULTIPLE ALLERGIES
     Route: 045
  14. CELEXA [Concomitant]
     Indication: DEPRESSION
     Route: 048
  15. WELLBUTRIN [Concomitant]
     Indication: MAJOR DEPRESSION
     Route: 048
  16. NEXIUM [Concomitant]
     Route: 048
  17. EPIPEN [Concomitant]
     Indication: ALLERGY TO ARTHROPOD STING
     Route: 030
  18. ALAVERT [Concomitant]
     Indication: MULTIPLE ALLERGIES
     Route: 048
  19. MAGNESIUM OXIDE [Concomitant]
     Route: 048
  20. POTASSIUM CHLORIDE [Concomitant]
     Route: 048
  21. FLUCONAZOLE [Concomitant]
     Indication: FUNGAL INFECTION
     Route: 048
  22. DOCUSATE SODIUM [Concomitant]
     Indication: ABNORMAL FAECES
     Route: 048
  23. AZITHROMYCIN [Concomitant]
     Indication: ANTIBIOTIC THERAPY
     Dosage: BEFORE PROCEDURES
     Route: 048

REACTIONS (7)
  - AMNESIA [None]
  - BLOOD CHOLESTEROL INCREASED [None]
  - BLOOD TRIGLYCERIDES INCREASED [None]
  - DIABETES MELLITUS [None]
  - GASTRIC ULCER [None]
  - PANCREATITIS [None]
  - WEIGHT INCREASED [None]
